FAERS Safety Report 12690739 (Version 1)
Quarter: 2016Q3

REPORT INFORMATION
  Report Type: Spontaneous
  Country: IL (occurrence: IL)
  Receive Date: 20160826
  Receipt Date: 20160826
  Transmission Date: 20161109
  Serious: Yes (Other)
  Sender: FDA-Public Use
  Company Number: IL-BAXTER-2016BAX043384

PATIENT
  Age: 73 Year
  Sex: Male

DRUGS (12)
  1. OXALIPLATIN HOSPIRA [Suspect]
     Active Substance: OXALIPLATIN
     Dosage: 5MG/ML 20 ML; SECOND TREATMENT
     Route: 065
  2. GLUCOSE 5% IV INFUSION BP VIAFLO [Suspect]
     Active Substance: DEXTROSE
     Dosage: 500 ML VIAFLO, THIRD TREATMENT WITH OXALIPLATIN 5MG/ML 20 ML
     Route: 065
     Dates: start: 20160811
  3. OXALIPLATIN HOSPIRA [Suspect]
     Active Substance: OXALIPLATIN
     Dosage: 5MG/ML 20 ML; FIRST TREATMENT
     Route: 065
     Dates: start: 20160619
  4. GLUCOSE 5% IV INFUSION BP VIAFLO [Suspect]
     Active Substance: DEXTROSE
     Dosage: 500 ML VIAFLO, SECOND TREATMENT WITH OXALIPLATIN 5MG/ML 20 ML
     Route: 065
  5. GLUCOSE 5% IV INFUSION BP VIAFLO [Suspect]
     Active Substance: DEXTROSE
     Dosage: 500 ML VIAFLO, THIRD TREATMENT WITH OXALIPLATIN 5MG/ML 50 MG
     Route: 065
     Dates: start: 20160811
  6. OXALIPLATIN HOSPIRA [Suspect]
     Active Substance: OXALIPLATIN
     Indication: PRODUCT USED FOR UNKNOWN INDICATION
     Dosage: 5MG/ML 50 MG; FIRST TREATMENT
     Route: 065
     Dates: start: 20160619
  7. OXALIPLATIN HOSPIRA [Suspect]
     Active Substance: OXALIPLATIN
     Dosage: 5MG/ML 20ML; THIRD TREATMENT
     Route: 065
     Dates: start: 20160811
  8. GLUCOSE 5% IV INFUSION BP VIAFLO [Suspect]
     Active Substance: DEXTROSE
     Indication: MEDICATION DILUTION
     Dosage: 500 ML VIAFLO, FIRST TREATMENT WITH OXALIPLATIN 5MG/ML 50 MG
     Route: 065
     Dates: start: 20160619
  9. GLUCOSE 5% IV INFUSION BP VIAFLO [Suspect]
     Active Substance: DEXTROSE
     Dosage: 500 ML VIAFLO, FIRST TREATMENT WITH OXALIPLATIN 5MG/ML 20 ML
     Route: 065
     Dates: start: 20160619
  10. OXALIPLATIN HOSPIRA [Suspect]
     Active Substance: OXALIPLATIN
     Dosage: 5MG/ML 50 MG; SECOND TREATMENT
     Route: 065
  11. OXALIPLATIN HOSPIRA [Suspect]
     Active Substance: OXALIPLATIN
     Dosage: 5MG/ML 50 MG; THIRD TREATMENT
     Route: 065
     Dates: start: 20160811
  12. GLUCOSE 5% IV INFUSION BP VIAFLO [Suspect]
     Active Substance: DEXTROSE
     Dosage: 500 ML VIAFLO, SECOND TREATMENT WITH OXALIPLATIN 5MG/ML 50 MG
     Route: 065

REACTIONS (6)
  - Paraesthesia [Recovered/Resolved]
  - Slow speech [Recovered/Resolved]
  - Aphasia [Recovered/Resolved]
  - Paraesthesia [Recovered/Resolved]
  - Gait disturbance [Recovered/Resolved]
  - Disorganised speech [Recovered/Resolved]

NARRATIVE: CASE EVENT DATE: 201608
